FAERS Safety Report 6899175-4 (Version None)
Quarter: 2010Q3

REPORT INFORMATION
  Report Type: 
  Country: None (occurrence: None)
  Receive Date: 20100802
  Receipt Date: 20080124
  Transmission Date: 20110219
  Serious: No
  Sender: FDA-Public Use
  Company Number: US-PFIZER INC-2007103753

PATIENT
  Age: 69 Year
  Sex: Female
  Weight: 68 kg

DRUGS (6)
  1. LYRICA [Suspect]
     Indication: NEURALGIA
     Dates: start: 20071127, end: 20071208
  2. LIPITOR [Suspect]
     Indication: BLOOD CHOLESTEROL INCREASED
     Route: 048
  3. GABAPENTIN [Concomitant]
     Dates: start: 20050101
  4. LISINOPRIL [Concomitant]
     Dates: start: 20080101
  5. LEVOTHYROXINE SODIUM [Concomitant]
     Dates: start: 19960101
  6. HYDROCHLOROTHIAZIDE [Concomitant]

REACTIONS (4)
  - HOT FLUSH [None]
  - MYALGIA [None]
  - RASH [None]
  - ROSACEA [None]
